FAERS Safety Report 14340160 (Version 3)
Quarter: 2020Q2

REPORT INFORMATION
  Report Type: Report from Study
  Country: DE (occurrence: DE)
  Receive Date: 20171231
  Receipt Date: 20200512
  Transmission Date: 20200713
  Serious: Yes (Other)
  Sender: FDA-Public Use
  Company Number: DE-ROCHE-2044938

PATIENT
  Sex: Female

DRUGS (2)
  1. BEVACIZUMAB. [Suspect]
     Active Substance: BEVACIZUMAB
     Indication: FALLOPIAN TUBE CANCER
     Route: 065
  2. BEVACIZUMAB. [Suspect]
     Active Substance: BEVACIZUMAB
     Indication: OVARIAN CANCER RECURRENT

REACTIONS (8)
  - Intestinal perforation [Unknown]
  - Infection [Unknown]
  - Hypertension [Unknown]
  - Intestinal obstruction [Unknown]
  - Proteinuria [Unknown]
  - Hypertensive crisis [Unknown]
  - Nephrotic syndrome [Unknown]
  - Gastrointestinal toxicity [Unknown]
